FAERS Safety Report 8900649 (Version 16)
Quarter: 2014Q3

REPORT INFORMATION
  Report Type: Spontaneous
  Country: US (occurrence: US)
  Receive Date: 20121109
  Receipt Date: 20140718
  Transmission Date: 20150326
  Serious: Yes (Other)
  Sender: FDA-Public Use
  Company Number: PHEH2012US022117

PATIENT
  Age: 53 Year
  Sex: Female

DRUGS (3)
  1. ZOMETA [Suspect]
     Active Substance: ZOLEDRONIC ACID
     Indication: BREAST CANCER METASTATIC
     Dosage: UNK UKN, UNK
     Route: 041
  2. ZOMETA [Suspect]
     Active Substance: ZOLEDRONIC ACID
     Indication: METASTASES TO SPINE
     Dosage: UNK UKN, UNK
     Dates: start: 200707, end: 2008
  3. AREDIA [Suspect]
     Active Substance: PAMIDRONATE DISODIUM
     Route: 042

REACTIONS (76)
  - Eczema [Unknown]
  - Emotional distress [Unknown]
  - Physical disability [Unknown]
  - Bone fistula [Unknown]
  - Toothache [Unknown]
  - Hypertension [Unknown]
  - Pulmonary granuloma [Unknown]
  - Bone disorder [Unknown]
  - Cerebral artery occlusion [Unknown]
  - Wound [Unknown]
  - Dental caries [Unknown]
  - Injury [Unknown]
  - Tooth disorder [Unknown]
  - Throat irritation [Unknown]
  - Hypothyroidism [Unknown]
  - Atelectasis [Unknown]
  - Bone swelling [Unknown]
  - Hepatic steatosis [Unknown]
  - Arthritis [Unknown]
  - Swelling [Unknown]
  - Osteitis [Unknown]
  - Gastric ulcer [Unknown]
  - Acute respiratory failure [Unknown]
  - Tooth abscess [Unknown]
  - Anaemia [Unknown]
  - Splenic granuloma [Unknown]
  - Large intestine polyp [Unknown]
  - Skin hypertrophy [Unknown]
  - Bronchitis [Unknown]
  - Hyperkeratosis [Unknown]
  - Pollakiuria [Unknown]
  - Anxiety [Unknown]
  - Diverticulum intestinal [Unknown]
  - Colon cancer [Unknown]
  - Abscess jaw [Unknown]
  - Lipoatrophy [Unknown]
  - Tooth loss [Unknown]
  - Osteonecrosis of jaw [Unknown]
  - Deformity [Unknown]
  - Osteoarthritis [Unknown]
  - Head deformity [Unknown]
  - Pain in jaw [Unknown]
  - Cardiac disorder [Unknown]
  - Breast cancer [Unknown]
  - Metastases to bone [Unknown]
  - Swelling face [Unknown]
  - Gastritis [Unknown]
  - Gastroenteritis Escherichia coli [Unknown]
  - Insomnia [Unknown]
  - Asthenia [Unknown]
  - Gastrooesophageal reflux disease [Unknown]
  - Oropharyngeal pain [Unknown]
  - Periostitis [Unknown]
  - Poor dental condition [Unknown]
  - Purulent discharge [Unknown]
  - Excessive granulation tissue [Unknown]
  - Sinusitis [Unknown]
  - Cerebral infarction [Unknown]
  - Pharyngitis [Unknown]
  - Mouth injury [Unknown]
  - Back pain [Unknown]
  - Arthralgia [Unknown]
  - Pain in extremity [Unknown]
  - Pain [Unknown]
  - Infection [Unknown]
  - Osteomyelitis [Unknown]
  - Pulmonary calcification [Unknown]
  - Lymphadenopathy [Unknown]
  - Tooth fracture [Unknown]
  - Skin lesion [Unknown]
  - Ovarian cancer [Unknown]
  - Exposed bone in jaw [Unknown]
  - Lymph node calcification [Unknown]
  - Enuresis [Unknown]
  - Myalgia [Unknown]
  - Vomiting [Unknown]

NARRATIVE: CASE EVENT DATE: 20140319
